FAERS Safety Report 9433835 (Version 1)
Quarter: 2013Q3

REPORT INFORMATION
  Report Type: Report from Study
  Country: DE (occurrence: DE)
  Receive Date: 20130731
  Receipt Date: 20130731
  Transmission Date: 20140515
  Serious: Yes (Hospitalization)
  Sender: FDA-Public Use
  Company Number: DE-ROCHE-1084886

PATIENT
  Age: 59 Year
  Sex: Female
  Weight: 52 kg

DRUGS (11)
  1. BEVACIZUMAB [Suspect]
     Indication: OVARIAN CANCER
     Dosage: DATE OF LAST DOSE PRIOR TO SAE: 12/JUN/2012
     Route: 042
     Dates: start: 20120612, end: 20130725
  2. BEVACIZUMAB [Suspect]
     Dosage: DATE OF LAST DOSE PRIOR TO SAE: 04/JUL/2013
     Route: 042
     Dates: start: 20120612
  3. BEVACIZUMAB [Suspect]
     Dosage: DATE OF LAST DOSE PRIOR TO SAE: 17/JUL/2012
     Route: 042
  4. CARBOPLATIN [Suspect]
     Indication: OVARIAN CANCER
     Dosage: DATE OF LAST DOSE PRIOR TO SAE: 12/JUN/2012
     Route: 042
     Dates: start: 20120612, end: 20130725
  5. CARBOPLATIN [Suspect]
     Dosage: DATE OF LAST DOSE PRIOR TO SAE: 25/OCT/2012
     Route: 042
     Dates: start: 20130612
  6. CARBOPLATIN [Suspect]
     Dosage: DATE OF LAST DOSE PRIOR TO SAE: 17/JUL/2012
     Route: 042
     Dates: start: 20120612
  7. PACLITAXEL [Suspect]
     Indication: OVARIAN CANCER
     Dosage: DATE OF LAST DOSE PRIOR TO SAE: 15/JUN/2012
     Route: 042
     Dates: start: 20120612, end: 20130725
  8. PACLITAXEL [Suspect]
     Dosage: DATE OF LAST DOSE PRIOR TO SAE: 25/OCT/2012
     Route: 042
  9. PACLITAXEL [Suspect]
     Dosage: DATE OF LAST DOSE PRIOR TO SAE: 17/JUL/2012
     Route: 042
     Dates: start: 20120612
  10. MST (GERMANY) [Concomitant]
     Indication: PAIN
     Route: 048
     Dates: start: 20130716, end: 20130725
  11. QUENSYL [Concomitant]
     Dosage: 17 (UNITS NOT PROVIDED)
     Route: 048
     Dates: end: 2012

REACTIONS (3)
  - Febrile infection [Recovered/Resolved]
  - Urinary retention [Unknown]
  - Hydronephrosis [Unknown]
